FAERS Safety Report 5792874-7 (Version None)
Quarter: 2008Q2

REPORT INFORMATION
  Report Type: 
  Country: None (occurrence: None)
  Receive Date: 20080627
  Receipt Date: 20080624
  Transmission Date: 20081010
  Serious: Yes (Death, Hospitalization, Other)
  Sender: FDA-Public Use
  Company Number: FR-BRISTOL-MYERS SQUIBB COMPANY-14077754

PATIENT
  Age: 84 Year
  Sex: Female

DRUGS (2)
  1. CEFEPIME HYDROCHLORIDE [Suspect]
     Indication: OSTEOMYELITIS
     Dates: start: 20071231, end: 20080119
  2. DALACINE [Concomitant]
     Dates: start: 20080109

REACTIONS (5)
  - ARTHRITIS BACTERIAL [None]
  - CARDIAC FAILURE CONGESTIVE [None]
  - ENCEPHALOPATHY [None]
  - OVERDOSE [None]
  - RENAL FAILURE [None]
